FAERS Safety Report 9642988 (Version 2)
Quarter: 2013Q4

REPORT INFORMATION
  Report Type: Spontaneous
  Country: FR (occurrence: None)
  Receive Date: 20131022
  Receipt Date: 20131031
  Transmission Date: 20140711
  Serious: Yes (Other)
  Sender: FDA-Public Use
  Company Number: SYM-2013-11656

PATIENT
  Age: 42 Year
  Sex: Female

DRUGS (2)
  1. FLAGYL [Suspect]
     Indication: INFECTION
     Route: 048
     Dates: start: 20130916, end: 20130926
  2. BACTRIM (BACTRIM) (SULFAMETHOXAZOLE, TRIMETHOPRIM) [Suspect]
     Indication: INFECTION
     Route: 048
     Dates: start: 20130913, end: 20130926

REACTIONS (9)
  - Microcytic anaemia [None]
  - Thrombocytopenia [None]
  - Lymphopenia [None]
  - Hypersensitivity [None]
  - Nausea [None]
  - Vomiting [None]
  - Abdominal pain [None]
  - Diarrhoea [None]
  - Clostridium test positive [None]
